FAERS Safety Report 17751368 (Version 1)
Quarter: 2020Q2

REPORT INFORMATION
  Report Type: Spontaneous
  Country: US (occurrence: US)
  Receive Date: 20200506
  Receipt Date: 20200506
  Transmission Date: 20200714
  Serious: Yes (Other)
  Sender: FDA-Public Use
  Company Number: None

PATIENT
  Sex: Female

DRUGS (10)
  1. ZOFRAN [Concomitant]
     Active Substance: ONDANSETRON HYDROCHLORIDE
  2. ADVAIR HFA [Concomitant]
     Active Substance: FLUTICASONE PROPIONATE\SALMETEROL XINAFOATE
  3. OXYCODONE [Concomitant]
     Active Substance: OXYCODONE
  4. OXYCODONE AND ACETAMINOPHEN [Concomitant]
     Active Substance: ACETAMINOPHEN\OXYCODONE HYDROCHLORIDE
  5. ALBUTEROL. [Concomitant]
     Active Substance: ALBUTEROL
  6. METHYLPRED [Concomitant]
     Active Substance: METHYLPREDNISOLONE
  7. ICATIBANT [Suspect]
     Active Substance: ICATIBANT ACETATE
     Indication: ENTEROCOLITIS
     Dosage: ?          OTHER FREQUENCY:AS NEEDED;?
     Route: 058
     Dates: start: 20190823
  8. ATIVAN [Concomitant]
     Active Substance: LORAZEPAM
  9. SPIRIVA [Concomitant]
     Active Substance: TIOTROPIUM BROMIDE MONOHYDRATE
  10. INCRUSE ELLIPTA [Concomitant]
     Active Substance: UMECLIDINIUM BROMIDE

REACTIONS (4)
  - Suspected COVID-19 [None]
  - Stress [None]
  - Swollen tongue [None]
  - Pharyngeal swelling [None]
